FAERS Safety Report 8936400 (Version 1)
Quarter: 2012Q4

REPORT INFORMATION
  Report Type: 
  Country: DK (occurrence: DK)
  Receive Date: 20121130
  Receipt Date: 20121130
  Transmission Date: 20130627
  Serious: Yes (Other)
  Sender: FDA-Public Use
  Company Number: DK-ELI_LILLY_AND_COMPANY-DK201211005809

PATIENT
  Age: 17 Year
  Sex: Female

DRUGS (3)
  1. ZYPREXA [Suspect]
     Dosage: 1 DF, unknown
  2. ZELDOX [Concomitant]
     Dosage: UNK, unknown
  3. LEPONEX [Concomitant]
     Dosage: UNK, unknown

REACTIONS (3)
  - Petit mal epilepsy [Unknown]
  - Electroencephalogram abnormal [Unknown]
  - Syncope [Unknown]
